FAERS Safety Report 16559439 (Version 2)
Quarter: 2019Q3

REPORT INFORMATION
  Report Type: Spontaneous
  Country: JP (occurrence: JP)
  Receive Date: 20190711
  Receipt Date: 20190911
  Transmission Date: 20191004
  Serious: Yes (Death)
  Sender: FDA-Public Use
  Company Number: JP-ACTELION-A-CH2019-185945

PATIENT
  Age: 75 Year
  Sex: Female
  Weight: 60.3 kg

DRUGS (16)
  1. OPSUMIT [Suspect]
     Active Substance: MACITENTAN
     Indication: PULMONARY ARTERIAL HYPERTENSION
     Dosage: 10 MG, QD
     Route: 048
     Dates: start: 20180704, end: 20190420
  2. DIART [Concomitant]
     Active Substance: AZOSEMIDE
  3. MEDICON [Concomitant]
     Active Substance: DEXTROMETHORPHAN HYDROBROMIDE
  4. AMLODIPINE [Concomitant]
     Active Substance: AMLODIPINE BESYLATE
  5. DEPAS [Concomitant]
  6. ADEMPAS [Concomitant]
     Active Substance: RIOCIGUAT
  7. OXYGEN. [Concomitant]
     Active Substance: OXYGEN
  8. PREDONINE [Concomitant]
     Active Substance: PREDNISOLONE
  9. UPTRAVI [Concomitant]
     Active Substance: SELEXIPAG
  10. XYZAL [Concomitant]
     Active Substance: LEVOCETIRIZINE DIHYDROCHLORIDE
  11. KIPRES [Concomitant]
     Active Substance: MONTELUKAST SODIUM
  12. ACTONEL [Concomitant]
     Active Substance: RISEDRONATE SODIUM
  13. LUNESTA [Concomitant]
     Active Substance: ESZOPICLONE
  14. ADCIRCA [Concomitant]
     Active Substance: TADALAFIL
  15. NEXIUM [Concomitant]
     Active Substance: ESOMEPRAZOLE MAGNESIUM
  16. PROMAC [Concomitant]
     Active Substance: NITROFURANTOIN

REACTIONS (2)
  - Interstitial lung disease [Fatal]
  - Anaemia [Unknown]

NARRATIVE: CASE EVENT DATE: 20180718
